FAERS Safety Report 21891822 (Version 1)
Quarter: 2023Q1

REPORT INFORMATION
  Report Type: Spontaneous
  Country: US (occurrence: None)
  Receive Date: 20230120
  Receipt Date: 20230120
  Transmission Date: 20230418
  Serious: Yes (Life-Threatening, Hospitalization)
  Sender: FDA-Public Use
  Company Number: None

PATIENT
  Age: 13 Year
  Sex: Male
  Weight: 60.75 kg

DRUGS (3)
  1. AFRIN [Suspect]
     Active Substance: OXYMETAZOLINE
     Indication: Sinusitis
     Dates: start: 20230106, end: 20230108
  2. CEFTRIAXONE [Concomitant]
     Active Substance: CEFTRIAXONE
  3. METRONIDAZOLE [Concomitant]
     Active Substance: METRONIDAZOLE

REACTIONS (3)
  - Eye swelling [None]
  - Thermal burn [None]
  - Brain operation [None]

NARRATIVE: CASE EVENT DATE: 20230109
